FAERS Safety Report 25199354 (Version 1)
Quarter: 2025Q2

REPORT INFORMATION
  Report Type: Spontaneous
  Country: FR (occurrence: FR)
  Receive Date: 20250415
  Receipt Date: 20250415
  Transmission Date: 20250716
  Serious: Yes (Hospitalization)
  Sender: MYLAN
  Company Number: None

PATIENT
  Age: 85 Year
  Sex: Male
  Weight: 79 kg

DRUGS (5)
  1. CANDESARTAN CILEXETIL [Suspect]
     Active Substance: CANDESARTAN CILEXETIL
     Indication: Essential hypertension
     Dosage: 16 MILLIGRAM, QD
     Dates: end: 202411
  2. CANDESARTAN CILEXETIL [Suspect]
     Active Substance: CANDESARTAN CILEXETIL
     Dosage: 32 MILLIGRAM, QD
     Dates: start: 202411, end: 20250324
  3. CANDESARTAN CILEXETIL [Suspect]
     Active Substance: CANDESARTAN CILEXETIL
     Dosage: 16 MILLIGRAM, QD
     Dates: start: 20250324
  4. ASPIRIN [Concomitant]
     Active Substance: ASPIRIN
     Dosage: 100 MILLIGRAM, QD
  5. CETHEXONIUM BROMIDE [Concomitant]
     Active Substance: CETHEXONIUM BROMIDE
     Indication: Product used for unknown indication
     Dosage: 1 DOSAGE FORM, QD, 1 DROP IN LEFT EYE

REACTIONS (1)
  - Immune thrombocytopenia [Recovered/Resolved]

NARRATIVE: CASE EVENT DATE: 20250318
